FAERS Safety Report 7303696-X (Version None)
Quarter: 2011Q1

REPORT INFORMATION
  Report Type: 
  Country: None (occurrence: None)
  Receive Date: 20110221
  Receipt Date: 20110210
  Transmission Date: 20110831
  Serious: Yes (Hospitalization, Other)
  Sender: FDA-Public Use
  Company Number: US-ROCHE-730916

PATIENT
  Sex: Female
  Weight: 68 kg

DRUGS (3)
  1. ORTHO TRI-CYCLEN [Concomitant]
  2. ACCUTANE [Suspect]
     Route: 065
     Dates: start: 19900901, end: 19930501
  3. ACCUTANE [Suspect]
     Route: 065
     Dates: start: 19980219

REACTIONS (5)
  - CROHN'S DISEASE [None]
  - SMALL INTESTINAL OBSTRUCTION [None]
  - GASTROINTESTINAL INJURY [None]
  - HEPATIC ENZYME INCREASED [None]
  - INFLAMMATORY BOWEL DISEASE [None]
